FAERS Safety Report 7294221-0 (Version None)
Quarter: 2011Q1

REPORT INFORMATION
  Report Type: 
  Country: None (occurrence: None)
  Receive Date: 20110215
  Receipt Date: 20110202
  Transmission Date: 20110831
  Serious: Yes (Hospitalization)
  Sender: FDA-Public Use
  Company Number: US-MYLANLABS-2011S1002385

PATIENT
  Age: 46 Year
  Sex: Female

DRUGS (2)
  1. HYDROCHLOROTHIAZIDE [Suspect]
     Indication: HYPERTENSION
     Dosage: 1 TABLET TAKEN
     Route: 065
  2. ATENOLOL [Concomitant]
     Route: 065

REACTIONS (2)
  - PULMONARY OEDEMA [None]
  - SHOCK [None]
